FAERS Safety Report 14999590 (Version 1)
Quarter: 2018Q2

REPORT INFORMATION
  Report Type: Spontaneous
  Country: AX (occurrence: AX)
  Receive Date: 20180522
  Receipt Date: 20180522
  Transmission Date: 20180711
  Serious: Yes (Hospitalization)
  Sender: FDA-Public Use
  Company Number: None

PATIENT
  Sex: Female

DRUGS (5)
  1. CALCIUM 600 [Concomitant]
  2. LEVOTHYROXIN [Concomitant]
     Active Substance: LEVOTHYROXINE
  3. HYDROCHLOROTHIAZIDE. [Concomitant]
     Active Substance: HYDROCHLOROTHIAZIDE
  4. CAPACETABINE [Suspect]
     Active Substance: CAPECITABINE
     Indication: BREAST CANCER FEMALE
     Route: 048
     Dates: start: 20161227
  5. DOFETILIDE. [Suspect]
     Active Substance: DOFETILIDE
     Indication: BREAST CANCER FEMALE
     Route: 048

REACTIONS (3)
  - Drug dose omission [None]
  - Heart rate increased [None]
  - Hypertension [None]
